FAERS Safety Report 8840055 (Version 1)
Quarter: 2012Q4

REPORT INFORMATION
  Report Type: 
  Country: US (occurrence: US)
  Receive Date: 20121015
  Receipt Date: 20121015
  Transmission Date: 20130627
  Serious: Yes (Other)
  Sender: FDA-Public Use
  Company Number: US-PFIZER INC-2012250182

PATIENT
  Age: 65 Year
  Sex: Female
  Weight: 130 kg

DRUGS (4)
  1. CELEBREX [Suspect]
     Indication: PREOPERATIVE CARE
     Dosage: 200 mg, single
  2. RIVAROXABAN [Suspect]
     Indication: KNEE ARTHROPLASTY
     Dosage: 1 in 1 day
     Route: 048
     Dates: start: 20120803, end: 201208
  3. RIVAROXABAN [Suspect]
     Indication: THROMBOSIS
  4. TORADOL [Suspect]
     Indication: PAIN
     Dosage: UNK
     Dates: start: 201208

REACTIONS (2)
  - Deep vein thrombosis [Recovered/Resolved]
  - Drug ineffective [Unknown]
